FAERS Safety Report 21993875 (Version 1)
Quarter: 2023Q1

REPORT INFORMATION
  Report Type: Spontaneous
  Country: US (occurrence: US)
  Receive Date: 20230215
  Receipt Date: 20230215
  Transmission Date: 20230417
  Serious: Yes (Hospitalization, Other)
  Sender: FDA-Public Use
  Company Number: US-Accord-300078

PATIENT
  Age: 75 Year
  Sex: Female

DRUGS (1)
  1. METHOTREXATE [Suspect]
     Active Substance: METHOTREXATE
     Indication: Rheumatoid arthritis
     Dosage: FOUR MONTHS PRIOR DOSAGE WAS CHANGED FROM 20 MG ONCE WEEKLY TO 2.5 MG ONCE DAILY
     Route: 048

REACTIONS (2)
  - Pancytopenia [Recovered/Resolved]
  - Colitis [Recovered/Resolved]
